FAERS Safety Report 5501219-9 (Version None)
Quarter: 2007Q4

REPORT INFORMATION
  Report Type: 
  Country: None (occurrence: None)
  Receive Date: 20071029
  Receipt Date: 20071017
  Transmission Date: 20080405
  Serious: Yes (Other)
  Sender: FDA-Public Use
  Company Number: US-PFIZER INC-2007087849

PATIENT
  Sex: Female
  Weight: 81.818 kg

DRUGS (4)
  1. CHANTIX [Suspect]
     Indication: SMOKING CESSATION THERAPY
     Dates: start: 20070929, end: 20071001
  2. LASIX [Concomitant]
  3. THYROID TAB [Concomitant]
  4. LIPITOR [Concomitant]

REACTIONS (5)
  - AGGRESSION [None]
  - ANGER [None]
  - HYPOAESTHESIA [None]
  - NIGHTMARE [None]
  - PALPITATIONS [None]
